FAERS Safety Report 8858516 (Version 1)
Quarter: 2012Q4

REPORT INFORMATION
  Report Type: 
  Country: KE (occurrence: KE)
  Receive Date: 20121024
  Receipt Date: 20121024
  Transmission Date: 20130627
  Serious: Yes (Hospitalization)
  Sender: FDA-Public Use
  Company Number: PHHY2012KE094636

PATIENT
  Age: 45 Year
  Sex: Male

DRUGS (4)
  1. SIMULECT [Suspect]
     Indication: RENAL TRANSPLANT
     Dosage: 20 mg, QD
     Route: 042
     Dates: start: 20120923, end: 20120925
  2. MYCOPHENOLIC ACID [Concomitant]
     Dosage: UNK UKN, UNK
     Dates: start: 20120923, end: 20120925
  3. TACROLIMUS [Concomitant]
     Dosage: UNK UKN, UNK
     Dates: start: 20120923, end: 20120925
  4. PREDNISONE [Concomitant]
     Dosage: UNK UKN, UNK
     Dates: start: 20120923, end: 20120925

REACTIONS (3)
  - Urine output decreased [Unknown]
  - Blood creatinine increased [Unknown]
  - Weight increased [Unknown]
